FAERS Safety Report 4283730-4 (Version None)
Quarter: 2004Q1

REPORT INFORMATION
  Report Type: 
  Country: None (occurrence: None)
  Receive Date: 20040115
  Receipt Date: 20030609
  Transmission Date: 20041129
  Serious: Yes (Other)
  Sender: FDA-Public Use
  Company Number: NSADSS2003005406

PATIENT
  Age: 78 Year
  Sex: Female
  Weight: 49.8957 kg

DRUGS (5)
  1. DOXIL [Suspect]
     Indication: OVARIAN CANCER
     Dosage: 85 MG/ML, 1 IN 3 WEEK
     Dates: start: 20021119, end: 20030121
  2. PROCRIT [Suspect]
     Indication: ANAEMIA
     Dosage: 20000 IU, 1 IN 5 WEEK, SUBCUTANEOUS
     Route: 058
  3. SINGULAIR [Concomitant]
  4. NEUPOGEN [Concomitant]
  5. COUMADIN [Concomitant]

REACTIONS (5)
  - BLISTER [None]
  - ERYTHEMA [None]
  - OEDEMA PERIPHERAL [None]
  - PAIN IN EXTREMITY [None]
  - SKIN ULCER [None]
